FAERS Safety Report 6801739-0 (Version None)
Quarter: 2010Q2

REPORT INFORMATION
  Report Type: 
  Country: None (occurrence: None)
  Receive Date: 20100629
  Receipt Date: 20100618
  Transmission Date: 20101027
  Serious: Yes (Other)
  Sender: FDA-Public Use
  Company Number: US-ELI_LILLY_AND_COMPANY-US201006005518

PATIENT
  Sex: Male

DRUGS (17)
  1. BYETTA [Suspect]
     Indication: TYPE 2 DIABETES MELLITUS
     Dosage: 5 UG, 2/D
     Route: 058
     Dates: start: 20100515, end: 20100614
  2. BYETTA [Suspect]
     Dosage: 10 UG, 2/D
     Route: 058
     Dates: start: 20100614, end: 20100617
  3. DIGOXIN [Concomitant]
     Indication: ATRIAL FIBRILLATION
     Dosage: 0.125 MG, DAILY (1/D)
  4. GLIPIZIDE [Concomitant]
     Indication: TYPE 2 DIABETES MELLITUS
     Dosage: 10 MG, 2/D
     Dates: end: 20100614
  5. GLIPIZIDE [Concomitant]
     Dosage: 5 MG, 2/D
     Dates: start: 20100614, end: 20100615
  6. GLIPIZIDE [Concomitant]
     Dosage: 10 MG, 2/D
     Dates: start: 20100617
  7. HYDROCHLOROTHIAZIDE [Concomitant]
     Indication: HYPERTENSION
     Dosage: 25 MG, DAILY (1/D)
  8. LISINOPRIL [Concomitant]
     Dosage: 10 MG, DAILY (1/D)
  9. LOVASTATIN [Concomitant]
     Indication: BLOOD CHOLESTEROL
     Dosage: 40 MG, EACH EVENING
  10. METFORMIN HCL [Concomitant]
     Indication: TYPE 2 DIABETES MELLITUS
     Dosage: 1000 MG, 2/D
  11. OMEPRAZOLE [Concomitant]
     Dosage: 20 MG, DAILY (1/D)
  12. VERAPAMIL [Concomitant]
     Indication: BLOOD PRESSURE
     Dosage: 240 MG, DAILY (1/D)
  13. ASPIRIN [Concomitant]
     Dosage: 81 MG, QOD
  14. CENTRUM SILVER [Concomitant]
     Dosage: UNK, DAILY (1/D)
  15. METAMUCIL-2 [Concomitant]
     Dosage: 1 D/F, DAILY (1/D)
  16. VITAMIN C [Concomitant]
     Dosage: 500 MG, DAILY (1/D)
  17. MORPHINE [Concomitant]

REACTIONS (11)
  - ABDOMINAL DISTENSION [None]
  - ATRIAL FIBRILLATION [None]
  - BLOOD GLUCOSE DECREASED [None]
  - BLOOD GLUCOSE INCREASED [None]
  - CONFUSIONAL STATE [None]
  - DIZZINESS [None]
  - DYSPNOEA [None]
  - EUPHORIC MOOD [None]
  - MALAISE [None]
  - NAUSEA [None]
  - WEIGHT INCREASED [None]
